FAERS Safety Report 6202960-5 (Version None)
Quarter: 2009Q2

REPORT INFORMATION
  Report Type: 
  Country: None (occurrence: None)
  Receive Date: 20090519
  Receipt Date: 20090409
  Transmission Date: 20091009
  Serious: Yes (Other)
  Sender: FDA-Public Use
  Company Number: 2009AP001354

PATIENT
  Age: 19 Year
  Sex: Female

DRUGS (1)
  1. FLUOXETINE HCL [Suspect]
     Dosage: 10 MG;QD ; 20 MG;QD

REACTIONS (6)
  - BINGE EATING [None]
  - BIPOLAR DISORDER [None]
  - DEPRESSION [None]
  - MANIA [None]
  - MOOD SWINGS [None]
  - SUICIDAL IDEATION [None]
